FAERS Safety Report 12826684 (Version 1)
Quarter: 2016Q4

REPORT INFORMATION
  Report Type: Spontaneous
  Country: US (occurrence: US)
  Receive Date: 20161006
  Receipt Date: 20161006
  Transmission Date: 20170207
  Serious: No
  Sender: FDA-Public Use
  Company Number: US-GE HEALTHCARE MEDICAL DIAGNOSTICS-TTSC-PR-1606S-0002

PATIENT
  Age: 20 Year
  Sex: Female

DRUGS (3)
  1. TECHNETIUM (TC99M) GENERATOR (TECHNELITE - BMS) [Concomitant]
  2. TECHNETIUM TC99M TSC [Suspect]
     Active Substance: TECHNETIUM TC-99M SULFUR COLLOID
     Indication: DIAGNOSTIC PROCEDURE
  3. TECHNETIUM TC99M TSC [Suspect]
     Active Substance: TECHNETIUM TC-99M SULFUR COLLOID
     Indication: PRODUCT USED FOR UNKNOWN INDICATION
     Route: 048
     Dates: start: 20150812, end: 20150812

REACTIONS (1)
  - Hypoaesthesia [Recovered/Resolved]

NARRATIVE: CASE EVENT DATE: 20150812
